FAERS Safety Report 11398341 (Version 1)
Quarter: 2015Q3

REPORT INFORMATION
  Report Type: Spontaneous
  Country: US (occurrence: None)
  Receive Date: 20150818
  Receipt Date: 20150818
  Transmission Date: 20151125
  Serious: Yes (Death)
  Sender: FDA-Public Use
  Company Number: ADR-2015-01570

PATIENT
  Age: 50 Year
  Sex: Male

DRUGS (1)
  1. COMPOUNDED BACLOFEN [Suspect]
     Active Substance: BACLOFEN
     Indication: CEREBRAL PALSY
     Dosage: 601 MCG/DAY

REACTIONS (2)
  - Cerebral palsy [None]
  - Disease complication [None]

NARRATIVE: CASE EVENT DATE: 20150806
